FAERS Safety Report 24210380 (Version 1)
Quarter: 2024Q3

REPORT INFORMATION
  Report Type: Spontaneous
  Country: CA (occurrence: CA)
  Receive Date: 20240814
  Receipt Date: 20240814
  Transmission Date: 20241016
  Serious: Yes (Death, Other)
  Sender: SANDOZ
  Company Number: CA-SANDOZ-SDZ2024CA072508

PATIENT
  Sex: Female

DRUGS (6)
  1. CIPROFLOXACIN [Suspect]
     Active Substance: CIPROFLOXACIN
     Indication: Infection
     Dosage: UNK
     Route: 065
  2. ERTAPENEM [Suspect]
     Active Substance: ERTAPENEM
     Indication: Infection
     Dosage: UNK
     Route: 065
  3. LINEZOLID [Suspect]
     Active Substance: LINEZOLID
     Indication: Infection
     Dosage: UNK
     Route: 065
  4. TAVNEOS [Suspect]
     Active Substance: AVACOPAN
     Indication: Lung disorder
     Dosage: UNK
     Route: 065
  5. Immunoglobulin [Concomitant]
     Indication: Lung disorder
     Dosage: UNK
     Route: 058
  6. RITUXIMAB [Concomitant]
     Active Substance: RITUXIMAB
     Indication: Lung disorder
     Dosage: UNK
     Route: 065

REACTIONS (5)
  - Death [Fatal]
  - Seizure [Fatal]
  - Cardiac arrest [Fatal]
  - Infection [Fatal]
  - Off label use [Fatal]
